FAERS Safety Report 16313678 (Version 2)
Quarter: 2019Q2

REPORT INFORMATION
  Report Type: Spontaneous
  Country: US (occurrence: US)
  Receive Date: 20190515
  Receipt Date: 20190625
  Transmission Date: 20190711
  Serious: Yes (Other)
  Sender: FDA-Public Use
  Company Number: US-PFIZER INC-2019203644

PATIENT
  Age: 20 Year
  Sex: Female

DRUGS (4)
  1. TIGAN [Suspect]
     Active Substance: TRIMETHOBENZAMIDE HYDROCHLORIDE
     Indication: NAUSEA
     Dosage: UNK
     Route: 048
  2. TELDRIN [CHLORPHENAMINE MALEATE] [Concomitant]
     Indication: RHINITIS
     Dosage: UNK
     Dates: end: 1968
  3. TELDRIN [CHLORPHENAMINE MALEATE] [Concomitant]
     Indication: SINUSITIS
  4. TIGAN [Suspect]
     Active Substance: TRIMETHOBENZAMIDE HYDROCHLORIDE
     Indication: VOMITING

REACTIONS (3)
  - Drug hypersensitivity [Unknown]
  - Hemiparesis [Recovered/Resolved]
  - Asthenia [Unknown]

NARRATIVE: CASE EVENT DATE: 1965
